FAERS Safety Report 10151881 (Version 2)
Quarter: 2014Q2

REPORT INFORMATION
  Report Type: Spontaneous
  Country: US (occurrence: US)
  Receive Date: 20140505
  Receipt Date: 20140515
  Transmission Date: 20141212
  Serious: No
  Sender: FDA-Public Use
  Company Number: US-BAYER-2014-059525

PATIENT
  Age: 53 Year
  Sex: Male
  Weight: 84 kg

DRUGS (9)
  1. BETASERON [Suspect]
     Indication: MULTIPLE SCLEROSIS
     Dosage: 0.25 MG, QOD
  2. FAMPRIDINE [Suspect]
     Indication: MULTIPLE SCLEROSIS
     Dosage: 10 MG, QD
     Route: 048
  3. VITAMIN D [Concomitant]
  4. CENTRUM [Concomitant]
  5. PREDNISONE [Concomitant]
  6. LYRICA [Concomitant]
  7. BACLOFEN [Concomitant]
  8. AMITRIPTYLINE [Concomitant]
  9. LORAZEPAM [Concomitant]

REACTIONS (1)
  - Anti-interferon antibody positive [None]
